FAERS Safety Report 12402302 (Version 2)
Quarter: 2016Q2

REPORT INFORMATION
  Report Type: Report from Study
  Country: JP (occurrence: JP)
  Receive Date: 20160525
  Receipt Date: 20160526
  Transmission Date: 20160815
  Serious: Yes (Other)
  Sender: FDA-Public Use
  Company Number: JP-PFIZER INC-2016263434

PATIENT
  Age: 57 Year
  Sex: Male
  Weight: 63 kg

DRUGS (57)
  1. PREDONINE [Suspect]
     Active Substance: PREDNISOLONE\PREDNISOLONE ACETATE\PREDNISOLONE SODIUM SUCCINATE
     Dosage: 100 MG, UNK
     Route: 058
     Dates: start: 20160112, end: 20160116
  2. RITUXAN [Suspect]
     Active Substance: RITUXIMAB
     Dosage: 590 MG, UNK
     Route: 041
     Dates: start: 20151221, end: 20151221
  3. OMEGACIN [Concomitant]
     Active Substance: BIAPENEM
     Indication: FEBRILE NEUTROPENIA
     Route: 041
  4. G-LASTA [Suspect]
     Active Substance: PEGFILGRASTIM
     Dosage: 3.6 MG, UNK
     Route: 058
     Dates: start: 20151224, end: 20151224
  5. PREDONINE [Suspect]
     Active Substance: PREDNISOLONE\PREDNISOLONE ACETATE\PREDNISOLONE SODIUM SUCCINATE
     Dosage: 100 MG, UNK
     Route: 048
     Dates: start: 20160209, end: 20160213
  6. ONCOVIN [Suspect]
     Active Substance: VINCRISTINE SULFATE
     Indication: NON-HODGKIN^S LYMPHOMA
     Dosage: 2 MG, UNK
     Route: 041
     Dates: start: 20151110, end: 20151110
  7. ONCOVIN [Suspect]
     Active Substance: VINCRISTINE SULFATE
     Dosage: 2 MG, UNK
     Route: 041
     Dates: start: 20151201, end: 20151201
  8. ONCOVIN [Suspect]
     Active Substance: VINCRISTINE SULFATE
     Dosage: 2 MG, UNK
     Route: 041
     Dates: start: 20160112, end: 20160112
  9. ONCOVIN [Suspect]
     Active Substance: VINCRISTINE SULFATE
     Dosage: 2 MG, UNK
     Route: 041
     Dates: start: 20160209, end: 20160209
  10. ENDOXAN [Suspect]
     Active Substance: CYCLOPHOSPHAMIDE
     Dosage: 1130 MG, UNK
     Route: 041
     Dates: start: 20151222, end: 20151222
  11. RITUXAN [Suspect]
     Active Substance: RITUXIMAB
     Dosage: 590 MG, UNK
     Route: 041
     Dates: start: 20160108, end: 20160108
  12. RITUXAN [Suspect]
     Active Substance: RITUXIMAB
     Dosage: 590 MG, UNK
     Route: 041
     Dates: start: 20160314, end: 20160314
  13. ITRIZOLE [Concomitant]
     Active Substance: ITRACONAZOLE
     Indication: PEMPHIGUS
     Route: 048
  14. FUNGUARD [Concomitant]
     Active Substance: MICAFUNGIN SODIUM
     Indication: PEMPHIGUS
     Route: 041
  15. ADRIACIN [Suspect]
     Active Substance: DOXORUBICIN HYDROCHLORIDE
     Dosage: 75 MG, UNK
     Route: 041
     Dates: start: 20160209, end: 20160209
  16. G-LASTA [Suspect]
     Active Substance: PEGFILGRASTIM
     Indication: PROPHYLAXIS
     Dosage: 3.6 MG, UNK
     Route: 058
     Dates: start: 20151113, end: 20151113
  17. G-LASTA [Suspect]
     Active Substance: PEGFILGRASTIM
     Dosage: 3.6 MG, UNK
     Route: 058
     Dates: start: 20160211, end: 20160211
  18. RITUXAN [Suspect]
     Active Substance: RITUXIMAB
     Indication: NON-HODGKIN^S LYMPHOMA
     Dosage: 675 MG, UNK
     Route: 041
     Dates: start: 20151112, end: 20151112
  19. SULFAMETHOXAZOLE AND TRIMETHOPRIM [Concomitant]
     Active Substance: SULFAMETHOXAZOLE\TRIMETHOPRIM
     Route: 048
  20. DENOSINE [Concomitant]
     Active Substance: GANCICLOVIR
     Indication: CYTOMEGALOVIRUS VIRAEMIA
     Route: 041
  21. FEBURIC [Concomitant]
     Active Substance: FEBUXOSTAT
     Route: 048
  22. MAGLAX [Concomitant]
     Active Substance: MAGNESIUM OXIDE
     Route: 048
  23. MUCOSAL [Concomitant]
     Indication: COUGH
     Route: 048
  24. SALAGEN [Concomitant]
     Active Substance: PILOCARPINE HYDROCHLORIDE
     Indication: PEMPHIGUS
     Route: 048
  25. ADRIACIN [Suspect]
     Active Substance: DOXORUBICIN HYDROCHLORIDE
     Indication: NON-HODGKIN^S LYMPHOMA
     Dosage: 86.5 MG, UNK
     Route: 041
     Dates: start: 20151110, end: 20151110
  26. G-LASTA [Suspect]
     Active Substance: PEGFILGRASTIM
     Dosage: 3.6 MG, UNK
     Route: 058
     Dates: start: 20160114, end: 20160114
  27. ONCOVIN [Suspect]
     Active Substance: VINCRISTINE SULFATE
     Dosage: 2 MG, UNK
     Route: 041
     Dates: start: 20160315, end: 20160315
  28. ENDOXAN [Suspect]
     Active Substance: CYCLOPHOSPHAMIDE
     Dosage: 1130 MG, UNK
     Route: 041
     Dates: start: 20160315, end: 20160315
  29. NISSEKI POLYGLOBIN N [Concomitant]
     Active Substance: HUMAN IMMUNOGLOBULIN G
     Indication: PEMPHIGUS
     Route: 042
  30. ADRIACIN [Suspect]
     Active Substance: DOXORUBICIN HYDROCHLORIDE
     Dosage: 75 MG, UNK
     Route: 041
     Dates: start: 20160315, end: 20160315
  31. G-LASTA [Suspect]
     Active Substance: PEGFILGRASTIM
     Dosage: 3.6 MG, UNK
     Route: 058
     Dates: start: 20151203, end: 20151203
  32. PREDONINE [Suspect]
     Active Substance: PREDNISOLONE\PREDNISOLONE ACETATE\PREDNISOLONE SODIUM SUCCINATE
     Dosage: 100 MG, UNK
     Route: 048
     Dates: start: 20160315, end: 20160319
  33. ONCOVIN [Suspect]
     Active Substance: VINCRISTINE SULFATE
     Dosage: 2 MG, UNK
     Route: 041
     Dates: start: 20151222, end: 20151222
  34. ENDOXAN [Suspect]
     Active Substance: CYCLOPHOSPHAMIDE
     Dosage: 1130 MG, UNK
     Route: 041
     Dates: start: 20160112, end: 20160112
  35. ENDOXAN [Suspect]
     Active Substance: CYCLOPHOSPHAMIDE
     Dosage: 1130 MG, UNK
     Route: 041
     Dates: start: 20160209, end: 20160209
  36. RITUXAN [Suspect]
     Active Substance: RITUXIMAB
     Dosage: 650 MG, UNK
     Route: 041
     Dates: start: 20151130, end: 20151130
  37. MECOBALAMIN [Concomitant]
     Active Substance: METHYLCOBALAMIN
     Route: 048
  38. SENNOSIDE [Concomitant]
     Active Substance: SENNOSIDES
     Route: 048
  39. MAXIPIME [Concomitant]
     Active Substance: CEFEPIME HYDROCHLORIDE
     Indication: FEBRILE NEUTROPENIA
     Route: 042
  40. VALIXA [Concomitant]
     Active Substance: VALGANCICLOVIR
     Indication: CYTOMEGALOVIRUS VIRAEMIA
     Route: 048
  41. ADRIACIN [Suspect]
     Active Substance: DOXORUBICIN HYDROCHLORIDE
     Dosage: 75 MG, UNK
     Route: 041
     Dates: start: 20160112, end: 20160112
  42. PREDONINE [Suspect]
     Active Substance: PREDNISOLONE\PREDNISOLONE ACETATE\PREDNISOLONE SODIUM SUCCINATE
     Indication: NON-HODGKIN^S LYMPHOMA
     Dosage: 100 MG, UNK
     Route: 048
     Dates: start: 20151110, end: 20151114
  43. PREDONINE [Suspect]
     Active Substance: PREDNISOLONE\PREDNISOLONE ACETATE\PREDNISOLONE SODIUM SUCCINATE
     Dosage: 100 MG, UNK
     Route: 048
     Dates: start: 20151222, end: 20151226
  44. RITUXAN [Suspect]
     Active Substance: RITUXIMAB
     Dosage: 590 MG, UNK
     Route: 041
     Dates: start: 20160208, end: 20160208
  45. LANSOPRAZOLE OD [Concomitant]
     Active Substance: LANSOPRAZOLE
     Route: 048
  46. MEDICON [Concomitant]
     Active Substance: DEXTROMETHORPHAN HYDROBROMIDE
     Indication: COUGH
     Route: 048
  47. CEFPIROME SULFATE [Concomitant]
     Active Substance: CEFPIROME SULFATE
     Indication: FEBRILE NEUTROPENIA
     Route: 042
  48. NEO-MINOPHAGEN C [Concomitant]
     Active Substance: AMMONIUM GLYCYRRHIZATE
     Indication: LIVER DISORDER
     Route: 042
  49. ADRIACIN [Suspect]
     Active Substance: DOXORUBICIN HYDROCHLORIDE
     Dosage: 79 MG, UNK
     Route: 041
     Dates: start: 20151201, end: 20151201
  50. G-LASTA [Suspect]
     Active Substance: PEGFILGRASTIM
     Dosage: 3.6 MG, UNK
     Route: 058
     Dates: start: 20160317, end: 20160317
  51. PREDONINE [Suspect]
     Active Substance: PREDNISOLONE\PREDNISOLONE ACETATE\PREDNISOLONE SODIUM SUCCINATE
     Dosage: 100 MG, UNK
     Route: 048
     Dates: start: 20151201, end: 20151205
  52. ENDOXAN [Suspect]
     Active Substance: CYCLOPHOSPHAMIDE
     Indication: NON-HODGKIN^S LYMPHOMA
     Dosage: 1295 MG, UNK
     Route: 041
     Dates: start: 20151110, end: 20151110
  53. ENDOXAN [Suspect]
     Active Substance: CYCLOPHOSPHAMIDE
     Dosage: 1185 MG, UNK
     Route: 041
     Dates: start: 20151201, end: 20151201
  54. FINIBAX [Suspect]
     Active Substance: DORIPENEM MONOHYDRATE
     Indication: FEBRILE NEUTROPENIA
     Route: 041
  55. OFLOXACIN. [Concomitant]
     Active Substance: OFLOXACIN
     Indication: PEMPHIGUS
     Route: 047
  56. FLORID [Concomitant]
     Active Substance: MICONAZOLE
     Indication: PEMPHIGUS
     Route: 048
  57. ADRIACIN [Suspect]
     Active Substance: DOXORUBICIN HYDROCHLORIDE
     Dosage: 75 MG, UNK
     Route: 041
     Dates: start: 20151222, end: 20151222

REACTIONS (10)
  - Cough [Recovered/Resolved]
  - Pyrexia [Recovered/Resolved]
  - Febrile neutropenia [Recovered/Resolved]
  - Febrile neutropenia [Recovered/Resolved]
  - Febrile neutropenia [Recovered/Resolved]
  - Febrile neutropenia [Recovered/Resolved]
  - Cytomegalovirus viraemia [Recovered/Resolved]
  - Weight decreased [Not Recovered/Not Resolved]
  - Febrile neutropenia [Recovered/Resolved]
  - Liver disorder [Recovered/Resolved]

NARRATIVE: CASE EVENT DATE: 201511
